FAERS Safety Report 5153585-4 (Version None)
Quarter: 2006Q4

REPORT INFORMATION
  Report Type: 
  Country: None (occurrence: None)
  Receive Date: 20061113
  Receipt Date: 20061030
  Transmission Date: 20070319
  Serious: Yes (Other)
  Sender: FDA-Public Use
  Company Number: 2006133648

PATIENT
  Age: 58 Year
  Sex: Male

DRUGS (3)
  1. ADRIAMYCIN PFS [Suspect]
     Indication: LEUKAEMIA PLASMACYTIC
     Dosage: (9 MG/M2)
  2. DEXAMETHASONE TAB [Suspect]
     Indication: LEUKAEMIA PLASMACYTIC
     Dosage: (40 MG)
  3. BORTEZOMIB (BORTEZOMIB) [Suspect]
     Indication: LEUKAEMIA PLASMACYTIC
     Dosage: (1.3 MG/M2)

REACTIONS (3)
  - BLINDNESS UNILATERAL [None]
  - DISEASE RECURRENCE [None]
  - HERPES ZOSTER DISSEMINATED [None]
